FAERS Safety Report 10727278 (Version 1)
Quarter: 2015Q1

REPORT INFORMATION
  Report Type: Spontaneous
  Country: US (occurrence: None)
  Receive Date: 20150120
  Receipt Date: 20150120
  Transmission Date: 20150721
  Serious: Yes (Other)
  Sender: FDA-Public Use
  Company Number: None

PATIENT
  Age: 34 Year
  Sex: Male
  Weight: 79.38 kg

DRUGS (2)
  1. HUMALOG [Suspect]
     Active Substance: INSULIN LISPRO
     Indication: DIABETES MELLITUS MANAGEMENT
     Dosage: 5 UNITS AV MEALS, QID, SUBCUTANEOUS
     Route: 058
     Dates: start: 20130701, end: 20141229
  2. INSULIN [Suspect]
     Active Substance: INSULIN NOS
     Indication: DIABETES MELLITUS
     Dosage: 16 UNITS HS, QHS/BEDTIME, SUBCUTANEOUS
     Route: 058
     Dates: start: 20130707, end: 20140731

REACTIONS (7)
  - Muscle spasms [None]
  - Chest discomfort [None]
  - Musculoskeletal disorder [None]
  - Pain [None]
  - Dyspnoea [None]
  - Hyperhidrosis [None]
  - Faecal incontinence [None]
